FAERS Safety Report 17415272 (Version 12)
Quarter: 2020Q3

REPORT INFORMATION
  Report Type: Report from Study
  Country: US (occurrence: US)
  Receive Date: 20200213
  Receipt Date: 20200715
  Transmission Date: 20201102
  Serious: Yes (Life-Threatening, Hospitalization, Disabling)
  Sender: FDA-Public Use
  Company Number: US-ROCHE-2547221

PATIENT
  Age: 52 Year
  Sex: Female
  Weight: 104 kg

DRUGS (65)
  1. PROPAFENONE HYDROCHLORIDE. [Concomitant]
     Active Substance: PROPAFENONE HYDROCHLORIDE
     Dates: start: 20200208
  2. HEPARIN [Concomitant]
     Active Substance: HEPARIN SODIUM
     Dosage: 1000 U
     Route: 042
     Dates: start: 20200309, end: 20200310
  3. PROPAFENONE. [Concomitant]
     Active Substance: PROPAFENONE
     Route: 048
     Dates: start: 20200207, end: 20200209
  4. ATORVASTATIN [Concomitant]
     Active Substance: ATORVASTATIN
     Route: 048
     Dates: start: 20200210, end: 20200210
  5. FENTANYL. [Concomitant]
     Active Substance: FENTANYL
     Indication: SEDATION
     Route: 042
     Dates: start: 20200206, end: 20200210
  6. FAMOTIDINE. [Concomitant]
     Active Substance: FAMOTIDINE
     Route: 048
     Dates: start: 20200207, end: 20200210
  7. MELATONIN [Concomitant]
     Active Substance: MELATONIN
     Route: 048
     Dates: start: 20200307
  8. DOCUSATE SODIUM. [Concomitant]
     Active Substance: DOCUSATE SODIUM
     Route: 048
     Dates: start: 20200305
  9. HEPARIN [Concomitant]
     Active Substance: HEPARIN SODIUM
     Dosage: 40000
     Route: 042
     Dates: start: 20200206, end: 20200206
  10. HEPARIN [Concomitant]
     Active Substance: HEPARIN SODIUM
     Dosage: 1800 U
     Route: 042
     Dates: start: 20200307, end: 20200309
  11. POTASSIUM PHOSPHATE [Concomitant]
     Active Substance: POTASSIUM PHOSPHATE
     Indication: HYPOPHOSPHATAEMIA
     Dosage: 30
     Route: 042
     Dates: start: 20200212, end: 20200212
  12. SENNA [Concomitant]
     Active Substance: SENNA LEAF\SENNOSIDES\SENNOSIDES A AND B
     Route: 048
     Dates: start: 20200208, end: 20200217
  13. ASPIRIN. [Concomitant]
     Active Substance: ASPIRIN
     Indication: ANTICOAGULANT THERAPY
     Route: 048
     Dates: start: 20200207, end: 20200208
  14. DIPHENHYDRAMINE. [Concomitant]
     Active Substance: DIPHENHYDRAMINE
     Indication: PRODUCT USED FOR UNKNOWN INDICATION
     Route: 042
     Dates: start: 20200206, end: 20200206
  15. LISINOPRIL. [Concomitant]
     Active Substance: LISINOPRIL
     Route: 048
     Dates: start: 20200214
  16. METOPROLOL SUCCINATE ER [Concomitant]
     Active Substance: METOPROLOL SUCCINATE
     Indication: ATRIAL FIBRILLATION
     Route: 042
     Dates: start: 20200214
  17. FLUOXETINE [Concomitant]
     Active Substance: FLUOXETINE HYDROCHLORIDE
     Indication: ANXIETY
     Route: 048
     Dates: start: 20190524
  18. CITALOPRAM [Concomitant]
     Active Substance: CITALOPRAM HYDROBROMIDE
     Indication: ANXIETY
     Route: 048
     Dates: start: 20200212
  19. CLOPIDOGREL [Concomitant]
     Active Substance: CLOPIDOGREL BISULFATE
     Indication: CEREBROVASCULAR ACCIDENT PROPHYLAXIS
     Route: 048
     Dates: start: 20200211
  20. HEPARIN [Concomitant]
     Active Substance: HEPARIN SODIUM
     Dosage: 4000 U
     Route: 042
     Dates: start: 20200306, end: 20200307
  21. HEPARIN [Concomitant]
     Active Substance: HEPARIN SODIUM
     Dosage: 3300 U
     Route: 047
     Dates: start: 20200309, end: 20200309
  22. METOPROLOL TARTRATE. [Concomitant]
     Active Substance: METOPROLOL TARTRATE
     Indication: HYPERTENSION
     Route: 048
     Dates: start: 20200209, end: 20200213
  23. PROPAFENONE. [Concomitant]
     Active Substance: PROPAFENONE
     Indication: ARRHYTHMIA
     Route: 048
     Dates: start: 20200208
  24. ATORVASTATIN [Concomitant]
     Active Substance: ATORVASTATIN
     Indication: HYPERLIPIDAEMIA
     Route: 048
     Dates: start: 20200206, end: 20200209
  25. LABETALOL [Concomitant]
     Active Substance: LABETALOL\LABETALOL HYDROCHLORIDE
     Indication: HYPERTENSION
     Route: 042
     Dates: start: 20200207, end: 20200207
  26. LACTATED RINGERS SOLUTION [Concomitant]
     Active Substance: CALCIUM CHLORIDE\POTASSIUM CHLORIDE\SODIUM CHLORIDE\SODIUM LACTATE
     Route: 042
     Dates: start: 20200307, end: 20200307
  27. METOPROLOL. [Concomitant]
     Active Substance: METOPROLOL
     Indication: HYPERTENSION
     Route: 042
     Dates: start: 20200207, end: 20200209
  28. RIVAROXABAN [Concomitant]
     Active Substance: RIVAROXABAN
     Indication: ANTICOAGULANT THERAPY
     Route: 048
     Dates: start: 20200212
  29. MORPHINE [Concomitant]
     Active Substance: MORPHINE
     Indication: PAIN
     Route: 042
     Dates: start: 20200304, end: 20200309
  30. PERMETHRIN. [Concomitant]
     Active Substance: PERMETHRIN
     Route: 061
     Dates: start: 20200306, end: 20200310
  31. MAGNESIUM OXIDE. [Concomitant]
     Active Substance: MAGNESIUM OXIDE
     Indication: CONSTIPATION
     Route: 048
     Dates: start: 20200305
  32. HEPARIN [Concomitant]
     Active Substance: HEPARIN SODIUM
     Dosage: 50000
     Route: 030
     Dates: start: 20200207, end: 20200207
  33. ACETAMINOPHEN. [Concomitant]
     Active Substance: ACETAMINOPHEN
     Route: 048
     Dates: start: 20200214, end: 20200216
  34. CEFAZOLIN [Concomitant]
     Active Substance: CEFAZOLIN
     Route: 042
     Dates: start: 20200206, end: 20200206
  35. CLINDAMYCIN. [Concomitant]
     Active Substance: CLINDAMYCIN
     Indication: WOUND INFECTION
     Route: 042
     Dates: start: 20200304, end: 20200304
  36. DOCUSATE SODIUM. [Concomitant]
     Active Substance: DOCUSATE SODIUM
     Indication: CONSTIPATION
     Route: 048
     Dates: start: 20190207, end: 20200213
  37. BACITRACIN. [Concomitant]
     Active Substance: BACITRACIN
     Dosage: DOSE: 50000 U
     Route: 061
     Dates: start: 20200306, end: 20200306
  38. BUPIVACAINE. [Concomitant]
     Active Substance: BUPIVACAINE
     Route: 030
     Dates: start: 20200207, end: 20200207
  39. HYDRALAZINE [Concomitant]
     Active Substance: HYDRALAZINE HYDROCHLORIDE
     Indication: HYPERTENSION
     Route: 042
     Dates: start: 20200206, end: 20200211
  40. LACTATED RINGERS SOLUTION [Concomitant]
     Active Substance: CALCIUM CHLORIDE\POTASSIUM CHLORIDE\SODIUM CHLORIDE\SODIUM LACTATE
     Route: 042
     Dates: start: 20200206, end: 20200206
  41. OXYCODONE [Concomitant]
     Active Substance: OXYCODONE
     Indication: PAIN
     Route: 048
     Dates: start: 20200309, end: 20200316
  42. PREGABALIN. [Concomitant]
     Active Substance: PREGABALIN
     Indication: PAIN IN EXTREMITY
     Route: 048
     Dates: start: 20200309, end: 20200316
  43. METOPROLOL SUCCINATE ER [Concomitant]
     Active Substance: METOPROLOL SUCCINATE
     Route: 042
     Dates: start: 20200207, end: 20200209
  44. HEPARIN [Concomitant]
     Active Substance: HEPARIN SODIUM
     Dates: start: 20200207, end: 20200211
  45. SODIUM CHLORIDE 0.9% [Concomitant]
     Active Substance: SODIUM CHLORIDE
     Route: 042
     Dates: start: 20200305, end: 20200306
  46. PROPAFENONE. [Concomitant]
     Active Substance: PROPAFENONE
     Route: 048
     Dates: start: 20191212, end: 20200207
  47. BACITRACIN. [Concomitant]
     Active Substance: BACITRACIN
     Route: 042
     Dates: start: 20200206, end: 20200206
  48. FAMOTIDINE. [Concomitant]
     Active Substance: FAMOTIDINE
     Indication: GASTROOESOPHAGEAL REFLUX DISEASE
     Route: 042
     Dates: start: 20200206, end: 20200207
  49. LIDOCAINE. [Concomitant]
     Active Substance: LIDOCAINE
     Indication: ANALGESIC THERAPY
     Dosage: 1
     Dates: start: 20200214, end: 20200217
  50. LISINOPRIL. [Concomitant]
     Active Substance: LISINOPRIL
     Indication: HYPERTENSION
     Route: 048
     Dates: start: 20200129, end: 20200206
  51. HEPARIN [Concomitant]
     Active Substance: HEPARIN SODIUM
     Dosage: 1600 U
     Route: 042
     Dates: start: 20200307, end: 20200308
  52. FENTANYL. [Concomitant]
     Active Substance: FENTANYL
     Route: 042
     Dates: start: 20200304, end: 20200304
  53. MAGNESIUM SULFATE. [Concomitant]
     Active Substance: MAGNESIUM SULFATE
     Indication: BLOOD MAGNESIUM DECREASED
     Route: 042
     Dates: start: 20200207, end: 20200210
  54. MUPIROCIN. [Concomitant]
     Active Substance: MUPIROCIN
     Dates: start: 20200207, end: 20200211
  55. MELATONIN [Concomitant]
     Active Substance: MELATONIN
     Indication: INSOMNIA
     Route: 048
     Dates: start: 20200216, end: 20200306
  56. MORPHINE [Concomitant]
     Active Substance: MORPHINE
     Route: 042
     Dates: start: 20200222, end: 20200222
  57. TRAMADOL. [Concomitant]
     Active Substance: TRAMADOL
     Route: 048
     Dates: start: 20200305, end: 20200309
  58. TENECTEPLASE [Suspect]
     Active Substance: TENECTEPLASE
     Indication: THROMBOLYSIS
     Dosage: INJECTION, POWDER, LYOPHILIZED, FOR SOLUTION
     Route: 042
     Dates: start: 20200206
  59. PROPAFENONE HYDROCHLORIDE. [Concomitant]
     Active Substance: PROPAFENONE HYDROCHLORIDE
     Indication: ATRIAL FIBRILLATION
     Dates: start: 20191212, end: 20200209
  60. FLUOXETINE [Concomitant]
     Active Substance: FLUOXETINE HYDROCHLORIDE
     Indication: DEPRESSION
     Route: 048
     Dates: start: 20190614, end: 20200211
  61. DOCUSATE SODIUM. [Concomitant]
     Active Substance: DOCUSATE SODIUM
     Route: 048
     Dates: start: 20200214, end: 20200217
  62. ACETAMINOPHEN. [Concomitant]
     Active Substance: ACETAMINOPHEN
     Route: 048
     Dates: start: 20200307
  63. SODIUM CHLORIDE 0.9% [Concomitant]
     Active Substance: SODIUM CHLORIDE
     Route: 042
     Dates: start: 20200206, end: 20200217
  64. LIDOCAINE. [Concomitant]
     Active Substance: LIDOCAINE
     Route: 042
     Dates: start: 20200210, end: 20200210
  65. POTASSIUM CHLORIDE. [Concomitant]
     Active Substance: POTASSIUM CHLORIDE
     Indication: HYPOKALAEMIA
     Dosage: 40
     Route: 048
     Dates: start: 20200207, end: 20200212

REACTIONS (4)
  - Wound infection [Not Recovered/Not Resolved]
  - Thrombosis [Recovering/Resolving]
  - Haemorrhagic infarction [Recovering/Resolving]
  - Dehiscence [Not Recovered/Not Resolved]

NARRATIVE: CASE EVENT DATE: 20200206
